FAERS Safety Report 8690803 (Version 2)
Quarter: 2013Q4

REPORT INFORMATION
  Report Type: Spontaneous
  Country: US (occurrence: US)
  Receive Date: 20120728
  Receipt Date: 20131031
  Transmission Date: 20140711
  Serious: Yes (Hospitalization, Other)
  Sender: FDA-Public Use
  Company Number: US-009507513-1207USA009849

PATIENT
  Age: 63 Year
  Sex: Male

DRUGS (7)
  1. VYTORIN [Suspect]
     Dosage: 1 DF, QD
     Route: 048
  2. TAHOR [Suspect]
     Dosage: 1 DF, QD
     Route: 048
  3. ENALAPRIL MALEATE [Suspect]
     Dosage: 10 MG, QD
     Route: 048
  4. NORSET [Suspect]
     Dosage: 30 MG, QD
     Route: 048
  5. ALLOPURINOL [Suspect]
     Dosage: 300 MG, QD
     Route: 048
  6. KARDEGIC [Concomitant]
     Dosage: 75 MG, QD
     Route: 048
  7. INIPOMP [Concomitant]
     Dosage: 1 DF, QD
     Route: 048

REACTIONS (3)
  - Paraesthesia [Unknown]
  - Blood creatine phosphokinase [Unknown]
  - Condition aggravated [Unknown]
